FAERS Safety Report 18044615 (Version 3)
Quarter: 2020Q3

REPORT INFORMATION
  Report Type: Report from Study
  Country: GB (occurrence: GB)
  Receive Date: 20200720
  Receipt Date: 20200818
  Transmission Date: 20201103
  Serious: Yes (Hospitalization)
  Sender: FDA-Public Use
  Company Number: GB-MYLANLABS-2020M1023601

PATIENT
  Age: 58 Year
  Sex: Female

DRUGS (96)
  1. COTRIMOXAZOLE [Concomitant]
     Active Substance: SULFAMETHOXAZOLE\TRIMETHOPRIM
     Dosage: 1920 MILLIGRAM, QD  (960 MG, 0.5 DAY)
     Route: 048
     Dates: start: 20190206, end: 20190211
  2. PARACETAMOL [Concomitant]
     Active Substance: ACETAMINOPHEN
     Dosage: 500 MILLIGRAM, PRN
     Route: 048
     Dates: start: 201504
  3. MEROPENEM. [Concomitant]
     Active Substance: MEROPENEM
     Dosage: 3 GRAM, QW (1 G, 0.33 WEEK )
     Route: 042
     Dates: start: 20190610, end: 20190617
  4. MORPHINE SULPHATE [Concomitant]
     Active Substance: MORPHINE SULFATE
     Dosage: 30 MILLIGRAM
     Route: 048
     Dates: start: 201504
  5. DEXAMETHASONE. [Concomitant]
     Active Substance: DEXAMETHASONE
     Dosage: 16 MILLIGRAM, QD (8 MG, 0.5 DAY)
     Route: 048
     Dates: start: 20151008, end: 20151020
  6. DOXYCYCLINE. [Concomitant]
     Active Substance: DOXYCYCLINE
     Dosage: 200 MILLIGRAM, QD
     Route: 048
     Dates: start: 20191223, end: 20191230
  7. DENOSUMAB [Concomitant]
     Active Substance: DENOSUMAB
     Dosage: 120 MILLIGRAM
     Route: 058
     Dates: start: 20180118
  8. CO?AMOXICLAV                       /00756801/ [Concomitant]
     Active Substance: AMOXICILLIN\CLAVULANIC ACID
     Dosage: UNK
     Route: 048
     Dates: start: 20190322
  9. ACYCLOVIR                          /00587301/ [Concomitant]
     Active Substance: ACYCLOVIR
     Dosage: UNK
     Route: 061
     Dates: start: 20161213, end: 20161218
  10. FLUCLOXACILLIN [Concomitant]
     Active Substance: FLUCLOXACILLIN
     Dosage: 4 GRAM, QD (1 GRAM, 0.25 DAY)
     Route: 042
     Dates: start: 20200130, end: 20200202
  11. DOXYCLINE                          /00055701/ [Concomitant]
     Active Substance: DOXYCYCLINE
     Dosage: 100 MILLIGRAM, QD
     Route: 048
     Dates: start: 20180815
  12. RIFAMPICIN [Concomitant]
     Active Substance: RIFAMPIN
     Dosage: 300 MILLIGRAM, BID
     Route: 048
     Dates: start: 20200212, end: 20200212
  13. LEVOTHYROXINE. [Concomitant]
     Active Substance: LEVOTHYROXINE
     Dosage: 50 MICROGRAM, QD
     Route: 048
     Dates: start: 20200311
  14. EXEMESTANE. [Suspect]
     Active Substance: EXEMESTANE
     Indication: BREAST CANCER
     Dosage: 25 MILLIGRAM, QD
     Route: 048
     Dates: start: 20170428, end: 20180110
  15. MORPHINE SULPHATE [Concomitant]
     Active Substance: MORPHINE SULFATE
     Dosage: 30 MILLIGRAM, QD
     Route: 048
     Dates: start: 201504
  16. LINEZOLID. [Concomitant]
     Active Substance: LINEZOLID
     Dosage: 1200 MILLIGRAM, QD (600 MG, 0.5 DAY)
     Route: 048
     Dates: start: 20181223, end: 20181227
  17. DEXAMETHASONE. [Concomitant]
     Active Substance: DEXAMETHASONE
     Dosage: 4 MILLIGRAM, QD (2 MG, 0.5 DAY)
     Route: 048
     Dates: start: 20151111, end: 20151117
  18. DOXYCYCLINE. [Concomitant]
     Active Substance: DOXYCYCLINE
     Dosage: 200 MILLIGRAM, QD
     Route: 048
     Dates: start: 20191223, end: 20191230
  19. VITAMIN D3 [Concomitant]
     Active Substance: CHOLECALCIFEROL
     Dosage: 400 INTERNATIONAL UNIT, QD
     Route: 048
     Dates: start: 20150827
  20. DIAZEPAM. [Concomitant]
     Active Substance: DIAZEPAM
     Dosage: 6 MILLIGRAM, QD (2 MG, 0.33 DAY)
     Route: 048
     Dates: start: 20180105
  21. FUROSEMIDE. [Concomitant]
     Active Substance: FUROSEMIDE
     Dosage: 40 MILLIGRAM, BID
     Route: 048
     Dates: start: 20200626
  22. LINEZOLID. [Concomitant]
     Active Substance: LINEZOLID
     Dosage: 1200 MILLIGRAM, QD (600 MG, 0.5 DAY)
     Route: 042
     Dates: start: 20190611, end: 20190621
  23. DEXAMETHASONE. [Concomitant]
     Active Substance: DEXAMETHASONE
     Dosage: 8 MILLIGRAM, QD (4 MG, 0.5 DAY)
     Route: 048
     Dates: start: 20151020, end: 20151103
  24. METRONIDAZOLE. [Concomitant]
     Active Substance: METRONIDAZOLE
     Dosage: 1600 MILLIGRAM, QD (400 MG, 0.25 DAY
     Route: 048
     Dates: start: 20180915, end: 20180921
  25. INHIXA [Concomitant]
     Active Substance: ENOXAPARIN SODIUM
     Indication: PROPHYLAXIS
     Dosage: 40 MILLIGRAM, QD
     Route: 058
     Dates: start: 20190610, end: 20190623
  26. FLUCLOXACILLIN [Concomitant]
     Active Substance: FLUCLOXACILLIN
     Dosage: 2000 MILLIGRAM, QD (500 MG, 0.25 DAY)
     Route: 048
     Dates: start: 20180910, end: 20180912
  27. FUROSEMIDE. [Concomitant]
     Active Substance: FUROSEMIDE
     Dosage: 20 MILLIGRAM, QD
     Route: 048
     Dates: start: 20191113, end: 20191116
  28. TRASTUZUMAB. [Suspect]
     Active Substance: TRASTUZUMAB
     Dosage: 420 MILLIGRAM, Q4W
     Route: 042
     Dates: start: 20180118
  29. COTRIMOXAZOLE [Concomitant]
     Active Substance: SULFAMETHOXAZOLE\TRIMETHOPRIM
     Dosage: 2 DOSAGE FORM, QD (1 DOSAGE FORM, 0.5 DAY)
     Route: 048
     Dates: start: 20181015, end: 20181022
  30. COTRIMOXAZOLE [Concomitant]
     Active Substance: SULFAMETHOXAZOLE\TRIMETHOPRIM
     Dosage: 1920 MILLIGRAM, QD (960 MG, 0.5 DAY)
     Route: 048
     Dates: start: 20190206, end: 20190219
  31. MEROPENEM. [Concomitant]
     Active Substance: MEROPENEM
     Dosage: 3 GRAM, QW (1 G, 0.33 WEEK)
     Route: 042
     Dates: start: 20181222, end: 20181227
  32. MORPHINE SULPHATE [Concomitant]
     Active Substance: MORPHINE SULFATE
     Dosage: 60 MILLIGRAM
     Route: 048
     Dates: start: 201504, end: 20160516
  33. MORPHINE SULPHATE [Concomitant]
     Active Substance: MORPHINE SULFATE
     Dosage: 10 MILLIGRAM
     Route: 048
     Dates: start: 20171224
  34. DEXAMETHASONE. [Concomitant]
     Active Substance: DEXAMETHASONE
     Dosage: 2 MILLIGRAM, QD (1 MG, 0.5 DAY)
     Route: 048
     Dates: start: 20151125, end: 20151202
  35. DOXYCYCLINE. [Concomitant]
     Active Substance: DOXYCYCLINE
     Dosage: 100 MILLIGRAM, QD
     Route: 048
     Dates: start: 20170112, end: 20170118
  36. TINZAPARIN [Concomitant]
     Active Substance: TINZAPARIN
     Dosage: 2200 INTERNATIONAL UNIT, QD
     Route: 058
     Dates: start: 20200624, end: 20200624
  37. HYOSCINE BUTYLBROMIDE [Concomitant]
     Active Substance: BUTYLSCOPOLAMINE BROMIDE
     Dosage: 30 MILLIGRAM, QD (10 MG TID)
     Route: 048
     Dates: start: 20181222
  38. LISINOPRIL. [Concomitant]
     Active Substance: LISINOPRIL
     Dosage: 7.5 MILLIGRAM, QD (2.5 MG, 0.33 QD)
     Route: 048
     Dates: start: 20161110
  39. FRUSEMIDE                          /00032601/ [Concomitant]
     Active Substance: FUROSEMIDE
     Dosage: 20 MILLIGRAM, QD
     Route: 048
     Dates: start: 20191113, end: 20191116
  40. LANSOPRAZOLE. [Concomitant]
     Active Substance: LANSOPRAZOLE
     Dosage: 15 MILLIGRAM, QD
     Route: 048
     Dates: start: 2001
  41. CLINDAMYCIN. [Concomitant]
     Active Substance: CLINDAMYCIN
     Dosage: 4.8 GRAM, QD (1.2 G, 0.25 DAY)
     Route: 042
     Dates: start: 20190611, end: 20190621
  42. CYCLIZINE [Concomitant]
     Active Substance: CYCLIZINE
     Dosage: 50 MILLIGRAM, TID,50 MILLIGRAM 0.33 D
     Route: 048
     Dates: start: 201507
  43. CLINDAMYCIN. [Concomitant]
     Active Substance: CLINDAMYCIN
     Dosage: 300 MILLIGRAM, BID
     Route: 048
     Dates: start: 20200206, end: 20200212
  44. COTRIMOXAZOLE [Concomitant]
     Active Substance: SULFAMETHOXAZOLE\TRIMETHOPRIM
     Dosage: 1920 MILLIGRAM, QD
     Route: 042
     Dates: start: 20190611, end: 20190611
  45. MEROPENEM. [Concomitant]
     Active Substance: MEROPENEM
     Dosage: 3 GRAM, QW (1 G, 0.33 WEEK)
     Route: 042
     Dates: start: 20190205, end: 20190205
  46. MEROPENEM. [Concomitant]
     Active Substance: MEROPENEM
     Dosage: 3 GRAM, QW (1 G TID)
     Route: 042
     Dates: start: 20180813, end: 20180814
  47. MORPHINE SULPHATE [Concomitant]
     Active Substance: MORPHINE SULFATE
     Dosage: 40 MILLIGRAM
     Route: 048
     Dates: start: 20150516, end: 201611
  48. LINEZOLID. [Concomitant]
     Active Substance: LINEZOLID
     Dosage: 1.2 GRAM, BID
     Route: 042
     Dates: start: 20200206, end: 20200212
  49. CIPROFLOXACIN. [Concomitant]
     Active Substance: CIPROFLOXACIN
     Dosage: 1500 MILLIGRAM, QD (750 MG BID)
     Route: 048
     Dates: start: 20190205, end: 20190206
  50. DEXAMETHASONE. [Concomitant]
     Active Substance: DEXAMETHASONE
     Dosage: 2 MILLIGRAM, QD (1 MG, 0.5 DAY)
     Route: 048
     Dates: start: 20151118, end: 20151124
  51. DOXYCYCLINE. [Concomitant]
     Active Substance: DOXYCYCLINE
     Dosage: 100 MILLIGRAM, QD
     Route: 048
     Dates: start: 20180815
  52. AMITRIPTYLINE                      /00002202/ [Concomitant]
     Active Substance: AMITRIPTYLINE
     Dosage: 10 MILLIGRAM, QD
     Route: 048
     Dates: start: 20160727, end: 20160809
  53. GABAPENTIN. [Concomitant]
     Active Substance: GABAPENTIN
     Dosage: 3.6 GRAM, QD (1.2 GRAM, 0.33 DAY)
     Route: 048
     Dates: start: 20151231
  54. GABAPENTIN. [Concomitant]
     Active Substance: GABAPENTIN
     Dosage: 300 MILLIGRAM, Q3D
     Route: 048
     Dates: start: 20151231
  55. PROMETHAZINE HYDROCHLORIDE. [Concomitant]
     Active Substance: PROMETHAZINE HYDROCHLORIDE
     Dosage: 50 MILLIGRAM, QD
     Route: 048
  56. CITALOPRAM [Concomitant]
     Active Substance: CITALOPRAM HYDROBROMIDE
     Dosage: 40 MILLIGRAM, QD
     Route: 048
     Dates: start: 2005
  57. TAZOCIN [Concomitant]
     Active Substance: PIPERACILLIN SODIUM\TAZOBACTAM SODIUM
     Dosage: 13.5 GRAM, QD (4.5 GRAM, 0.33 DAY)
     Route: 042
     Dates: start: 20191221, end: 20191227
  58. FRUSEMIDE                          /00032601/ [Concomitant]
     Active Substance: FUROSEMIDE
     Dosage: 40 MILLIGRAM, BID
     Route: 048
     Dates: start: 20200626
  59. FRUSEMIDE                          /00032601/ [Concomitant]
     Active Substance: FUROSEMIDE
     Dosage: 80 MILLIGRAM, QD
     Route: 048
     Dates: start: 20151112, end: 20151118
  60. DOXYCLINE                          /00055701/ [Concomitant]
     Active Substance: DOXYCYCLINE
     Dosage: 100 MILLIGRAM, QD
     Route: 048
     Dates: start: 20170112, end: 20170118
  61. PARACETAMOL [Concomitant]
     Active Substance: ACETAMINOPHEN
     Dosage: 500 MILLIGRAM
     Route: 048
     Dates: start: 201504
  62. LOPERAMIDE [Concomitant]
     Active Substance: LOPERAMIDE
     Dosage: UNK
     Route: 065
     Dates: start: 201804, end: 2019
  63. DEXAMETHASONE. [Concomitant]
     Active Substance: DEXAMETHASONE
     Dosage: 8 MILLIGRAM, QD (4 MG, 0.5 DAY)
     Route: 048
     Dates: start: 20151104, end: 20151110
  64. CO?AMOXICLAV                       /00756801/ [Concomitant]
     Active Substance: AMOXICILLIN\CLAVULANIC ACID
     Dosage: 1875 MILLIGRAM, QD (625 MG, 0.33 DAY)
     Route: 048
     Dates: start: 20190205, end: 20190206
  65. TINZAPARIN [Concomitant]
     Active Substance: TINZAPARIN
     Dosage: UNK, QD
     Route: 058
     Dates: start: 20190928
  66. ZOMETA [Concomitant]
     Active Substance: ZOLEDRONIC ACID
     Dosage: 4 MILLIGRAM
     Route: 042
     Dates: start: 20150827, end: 20160314
  67. BENZYLPENICILLIN [Concomitant]
     Active Substance: PENICILLIN G
     Dosage: 4.8 GRAM, QD (1.2 GRAM, 0.25 QD)
     Route: 042
     Dates: start: 20180912, end: 20180915
  68. FLUCLOXACILLIN [Concomitant]
     Active Substance: FLUCLOXACILLIN
     Dosage: 2000 MILLIGRAM, QD (500 MG, 0.25 DAY)
     Route: 048
     Dates: start: 20161110, end: 20161117
  69. NAPROXEN. [Concomitant]
     Active Substance: NAPROXEN
     Dosage: 500 MILLIGRAM, QD (250 MG, 0.5 DAY)
     Route: 048
  70. FUROSEMIDE. [Concomitant]
     Active Substance: FUROSEMIDE
     Dosage: 40 MILLIGRAM, BID
     Route: 042
     Dates: start: 20200623, end: 20200626
  71. TRASTUZUMAB. [Suspect]
     Active Substance: TRASTUZUMAB
     Indication: BREAST CANCER
     Dosage: 600 MILLIGRAM, MONTHLY
     Route: 058
     Dates: start: 20150716, end: 20171222
  72. MORPHINE SULPHATE [Concomitant]
     Active Substance: MORPHINE SULFATE
     Dosage: 10 MILLIGRAM
     Route: 048
     Dates: start: 20171224
  73. DOXYCYCLINE. [Concomitant]
     Active Substance: DOXYCYCLINE
     Dosage: 200 MILLIGRAM, QD (100 MG, 0.5 QD)
     Route: 048
     Dates: start: 20180814, end: 20180814
  74. DENOSUMAB [Concomitant]
     Active Substance: DENOSUMAB
     Dosage: 120 MILLIGRAM
     Route: 058
     Dates: start: 20170604, end: 20170613
  75. MAGNESIUM ASPARTATE [Concomitant]
     Active Substance: MAGNESIUM ASPARTATE
     Dosage: 13 GRAM, QD (6.5 GRAM, 0.5 DAY)
     Route: 048
     Dates: start: 20191111
  76. PROMETHAZINE HYDROCHLORIDE. [Concomitant]
     Active Substance: PROMETHAZINE HYDROCHLORIDE
     Dosage: 25 MILLIGRAM, QD
     Route: 048
  77. TAZOCIN [Concomitant]
     Active Substance: PIPERACILLIN SODIUM\TAZOBACTAM SODIUM
     Dosage: 13.5 GRAM, QD (4.5 GRAM, 0.33 DAY)
     Route: 042
     Dates: start: 20200202, end: 20200206
  78. ACYCLOVIR                          /00587301/ [Concomitant]
     Active Substance: ACYCLOVIR
     Dosage: 800 MILLIGRAM
     Route: 048
     Dates: start: 20160727, end: 20160807
  79. FLUCLOXACILLIN [Concomitant]
     Active Substance: FLUCLOXACILLIN
     Dosage: 4 GRAM, QD (1 GRAM, 0.25 DAY)
     Route: 042
     Dates: start: 20180912, end: 20180915
  80. TEICOPLANIN [Concomitant]
     Active Substance: TEICOPLANIN
     Dosage: 1200 MILLIGRAM, QD
     Route: 042
     Dates: start: 20181019, end: 20181025
  81. DERMOL                             /01330701/ [Concomitant]
     Dosage: UNK, QID
     Route: 061
  82. LANSOPRAZOLE. [Concomitant]
     Active Substance: LANSOPRAZOLE
     Dosage: 30 MILLIGRAM, QD
     Route: 048
     Dates: start: 2001
  83. ZOMORPH [Concomitant]
     Active Substance: MORPHINE SULFATE
     Dosage: 60 MILLIGRAM, QD (30 MG BID)
     Route: 048
     Dates: start: 201611
  84. VANCOMYCIN [Concomitant]
     Active Substance: VANCOMYCIN
     Dosage: 1.5 GRAM, BID (0.5 DAY)
     Route: 042
     Dates: start: 20200201, end: 20200206
  85. FUROSEMIDE. [Concomitant]
     Active Substance: FUROSEMIDE
     Dosage: 40 MILLIGRAM, QD
     Route: 042
     Dates: start: 20200622, end: 20200623
  86. FUROSEMIDE. [Concomitant]
     Active Substance: FUROSEMIDE
     Dosage: 40 MILLIGRAM, QD
     Route: 048
     Dates: start: 20191117
  87. LETROZOLE. [Suspect]
     Active Substance: LETROZOLE
     Indication: BREAST CANCER
     Dosage: 2.5 MILLIGRAM, QD
     Route: 048
     Dates: start: 201507, end: 20170427
  88. DOXYCYCLINE. [Concomitant]
     Active Substance: DOXYCYCLINE
     Dosage: 200 MILLIGRAM, QD
     Route: 048
     Dates: start: 20190929, end: 20191005
  89. METRONIDAZOLE. [Concomitant]
     Active Substance: METRONIDAZOLE
     Dosage: UNK
     Route: 048
     Dates: start: 20170701, end: 20170708
  90. INHIXA [Concomitant]
     Active Substance: ENOXAPARIN SODIUM
     Dosage: 40 MILLIGRAM, QD
     Route: 058
     Dates: start: 20200622, end: 20200623
  91. TINZAPARIN [Concomitant]
     Active Substance: TINZAPARIN
     Dosage: 40 MILLIGRAM, QD
     Route: 058
     Dates: start: 20200625, end: 20200625
  92. ACYCLOVIR                          /00587301/ [Concomitant]
     Active Substance: ACYCLOVIR
     Dosage: 800 MILLIGRAM
     Route: 048
     Dates: start: 20160727, end: 20160807
  93. FLUCLOXACILLIN [Concomitant]
     Active Substance: FLUCLOXACILLIN
     Dosage: 2000 MILLIGRAM, QD (500 MG, 0.25 DAY)
     Route: 048
     Dates: start: 20180915, end: 20180921
  94. FRUSEMIDE                          /00032601/ [Concomitant]
     Active Substance: FUROSEMIDE
     Dosage: 80 MILLIGRAM, QD
     Route: 048
     Dates: start: 20151112, end: 20191118
  95. FRUSEMIDE                          /00032601/ [Concomitant]
     Active Substance: FUROSEMIDE
     Dosage: 40 MILLIGRAM, QD
     Route: 048
     Dates: start: 20191117
  96. FUROSEMIDE. [Concomitant]
     Active Substance: FUROSEMIDE
     Dosage: 80 MILLIGRAM, QD
     Route: 048
     Dates: start: 20151112, end: 20151118

REACTIONS (2)
  - Pyrexia [Not Recovered/Not Resolved]
  - Pneumonia [Recovered/Resolved]

NARRATIVE: CASE EVENT DATE: 20191217
